FAERS Safety Report 9229659 (Version 2)
Quarter: 2013Q2

REPORT INFORMATION
  Report Type: Spontaneous
  Country: IT (occurrence: IT)
  Receive Date: 20130415
  Receipt Date: 20130527
  Transmission Date: 20140414
  Serious: Yes (Other)
  Sender: FDA-Public Use
  Company Number: IT-009507513-1304ITA005822

PATIENT
  Age: 75 Year
  Sex: Female

DRUGS (1)
  1. ADRONAT 70MG COMPRESSE [Suspect]
     Indication: RHEUMATOID ARTHRITIS
     Dosage: 70 MG, QW
     Route: 048
     Dates: start: 20080101, end: 20100701

REACTIONS (2)
  - Abscess jaw [Unknown]
  - Osteonecrosis of jaw [Unknown]
